FAERS Safety Report 22361962 (Version 1)
Quarter: 2023Q2

REPORT INFORMATION
  Report Type: Spontaneous
  Country: US (occurrence: US)
  Receive Date: 20230524
  Receipt Date: 20230524
  Transmission Date: 20230721
  Serious: Yes (Hospitalization, Other)
  Sender: FDA-Public Use
  Company Number: US-NOVAST LABORATORIES INC.-2023NOV000252

PATIENT
  Age: 39 Year
  Sex: Female

DRUGS (7)
  1. CLONIDINE [Suspect]
     Active Substance: CLONIDINE
     Indication: Anxiety
     Dosage: 0.6 MILLIGRAM, BEDTIME
     Route: 065
  2. CLONIDINE [Suspect]
     Active Substance: CLONIDINE
     Dosage: EVERY 3 DAYS
     Route: 065
  3. BISACODYL [Suspect]
     Active Substance: BISACODYL
     Indication: Constipation
     Dosage: SIX TABLETS
     Route: 065
  4. BISACODYL [Suspect]
     Active Substance: BISACODYL
     Dosage: 20 TABLETS PER DAY
     Route: 065
  5. BISACODYL [Suspect]
     Active Substance: BISACODYL
     Dosage: THREE TABLETS EVERY TWO WEEKS
     Route: 065
  6. OLANZAPINE [Suspect]
     Active Substance: OLANZAPINE
     Indication: Bipolar disorder
     Dosage: 15 MILLIGRAM, DAILY
     Route: 065
  7. PROPRANOLOL [Concomitant]
     Active Substance: PROPRANOLOL HYDROCHLORIDE
     Indication: Product used for unknown indication
     Dosage: UNK
     Route: 065

REACTIONS (2)
  - Colitis ischaemic [Recovering/Resolving]
  - Product use in unapproved indication [Unknown]
